FAERS Safety Report 14165064 (Version 1)
Quarter: 2017Q4

REPORT INFORMATION
  Report Type: Spontaneous
  Country: CN (occurrence: CN)
  Receive Date: 20171107
  Receipt Date: 20171107
  Transmission Date: 20180321
  Serious: Yes (Other)
  Sender: FDA-Public Use
  Company Number: CN-APOPHARMA USA, INC.-2017AP020524

PATIENT

DRUGS (1)
  1. ALKERAN [Suspect]
     Active Substance: MELPHALAN
     Indication: RETINOBLASTOMA
     Dosage: 40 ?G, SINGLE
     Route: 050

REACTIONS (3)
  - Vascular occlusion [Unknown]
  - Retinal vasculitis [Unknown]
  - Chorioretinal atrophy [Unknown]
